FAERS Safety Report 6576430-9 (Version None)
Quarter: 2010Q1

REPORT INFORMATION
  Report Type: 
  Country: None (occurrence: None)
  Receive Date: 20100210
  Receipt Date: 20100129
  Transmission Date: 20100710
  Serious: Yes (Other)
  Sender: FDA-Public Use
  Company Number: PHEH2010US01579

PATIENT
  Sex: Female

DRUGS (5)
  1. EXELON [Suspect]
     Dosage: 4.6 MG, UNK
     Route: 062
  2. EXELON [Suspect]
     Dosage: 9.5 MG, UNK
     Route: 062
  3. EXELON [Suspect]
     Dosage: 4.6 MG, UNK
     Route: 062
  4. DEPAKOTE [Concomitant]
     Dosage: 250 MG, UNK
  5. ZYPREXA [Concomitant]
     Dosage: 10 MG, UNK

REACTIONS (2)
  - NAUSEA [None]
  - SURGERY [None]
